FAERS Safety Report 4332625-6 (Version None)
Quarter: 2004Q1

REPORT INFORMATION
  Report Type: 
  Country: None (occurrence: None)
  Receive Date: 20040330
  Receipt Date: 20040312
  Transmission Date: 20041129
  Serious: Yes (Hospitalization)
  Sender: FDA-Public Use
  Company Number: 2004-06802

PATIENT
  Age: 56 Year
  Sex: Male

DRUGS (10)
  1. VIREAD [Suspect]
     Indication: HIV INFECTION
     Dosage: 300 MG QD PO
     Route: 048
     Dates: start: 20030601
  2. NORVIR [Suspect]
     Indication: HIV INFECTION
     Dates: start: 19970609
  3. EPIVIR [Suspect]
     Indication: HIV INFECTION
     Dates: start: 19960828
  4. VIRAMUNE [Suspect]
     Indication: HIV INFECTION
     Dates: start: 20030601
  5. AGENERASE [Suspect]
     Indication: HIV INFECTION
     Dates: start: 20030601
  6. FUZEON [Suspect]
     Indication: HIV INFECTION
     Dates: start: 20030601
  7. PREDNISONE [Concomitant]
  8. PREVISCAN [Concomitant]
  9. IMOVANE [Concomitant]
  10. LEVOCARNITINE [Concomitant]

REACTIONS (1)
  - INTERSTITIAL LUNG DISEASE [None]
